FAERS Safety Report 8699204 (Version 2)
Quarter: 2012Q4

REPORT INFORMATION
  Report Type: 
  Country: TW (occurrence: TW)
  Receive Date: 20120802
  Receipt Date: 20120920
  Transmission Date: 20130627
  Serious: Yes (Death)
  Sender: FDA-Public Use
  Company Number: PHHY2012TW066159

PATIENT

DRUGS (1)
  1. TELBIVUDINE [Suspect]
     Indication: HEPATITIS B

REACTIONS (1)
  - Death [Fatal]
